FAERS Safety Report 7903141-7 (Version None)
Quarter: 2011Q4

REPORT INFORMATION
  Report Type: 
  Country: None (occurrence: None)
  Receive Date: 20111108
  Receipt Date: 20111108
  Transmission Date: 20120403
  Serious: Yes (Hospitalization)
  Sender: FDA-Public Use
  Company Number: None

PATIENT
  Sex: Male
  Weight: 64.3 kg

DRUGS (2)
  1. CISPLATIN [Suspect]
     Dosage: 127 MG
     Dates: end: 20111025
  2. TAXOTERE [Suspect]
     Dosage: 127 MG
     Dates: end: 20111025

REACTIONS (2)
  - DIARRHOEA [None]
  - NAUSEA [None]
